FAERS Safety Report 5739735-7 (Version None)
Quarter: 2008Q2

REPORT INFORMATION
  Report Type: 
  Country: None (occurrence: None)
  Receive Date: 20080512
  Receipt Date: 20080512
  Transmission Date: 20081010
  Serious: Yes (Life-Threatening, Hospitalization, Other)
  Sender: FDA-Public Use
  Company Number: None

PATIENT
  Age: 41 Year
  Sex: Female
  Weight: 44.4525 kg

DRUGS (1)
  1. VENLAFAXIINE HCL [Suspect]
     Dosage: 75 MG 2 PD PO
     Route: 048
     Dates: start: 20080115, end: 20080129

REACTIONS (11)
  - AGGRESSION [None]
  - AGITATION [None]
  - ALCOHOL USE [None]
  - AMNESIA [None]
  - CONVERSION DISORDER [None]
  - IMPULSIVE BEHAVIOUR [None]
  - INCORRECT DOSE ADMINISTERED [None]
  - LOSS OF CONSCIOUSNESS [None]
  - OBSESSIVE THOUGHTS [None]
  - PANIC REACTION [None]
  - SUICIDAL IDEATION [None]
